FAERS Safety Report 5911408-7 (Version None)
Quarter: 2008Q4

REPORT INFORMATION
  Report Type: 
  Country: None (occurrence: None)
  Receive Date: 20081002
  Receipt Date: 20080915
  Transmission Date: 20090506
  Serious: Yes (Death, Hospitalization, Congenital Anomaly)
  Sender: FDA-Public Use
  Company Number: 034494

PATIENT
  Sex: Male
  Weight: 0.9 kg

DRUGS (1)
  1. CLARAVIS [Suspect]
     Dosage: 40 MG, TID, ORAL
     Route: 048
     Dates: start: 20080421, end: 20080603

REACTIONS (4)
  - DANDY-WALKER SYNDROME [None]
  - HEART DISEASE CONGENITAL [None]
  - MATERNAL DRUGS AFFECTING FOETUS [None]
  - PREMATURE BABY [None]
